FAERS Safety Report 13909577 (Version 29)
Quarter: 2023Q2

REPORT INFORMATION
  Report Type: Spontaneous
  Country: US (occurrence: US)
  Receive Date: 20170828
  Receipt Date: 20230406
  Transmission Date: 20230721
  Serious: No
  Sender: FDA-Public Use
  Company Number: US-PFIZER INC-2017355570

PATIENT
  Age: 66 Year
  Sex: Female
  Weight: 54 kg

DRUGS (15)
  1. XELJANZ XR [Suspect]
     Active Substance: TOFACITINIB CITRATE
     Indication: Rheumatoid arthritis
     Dosage: 11 MG, 1X/DAY (WITH OR WITHOUT FOOD)
     Route: 048
     Dates: start: 20170808
  2. XELJANZ XR [Suspect]
     Active Substance: TOFACITINIB CITRATE
     Indication: Polymyalgia rheumatica
     Dosage: 11 MG, DAILY
     Route: 048
  3. XELJANZ XR [Suspect]
     Active Substance: TOFACITINIB CITRATE
     Dosage: 11 MG, 1X/DAY
     Route: 048
  4. XELJANZ XR [Suspect]
     Active Substance: TOFACITINIB CITRATE
     Dosage: 11 MG, DAILY
  5. PREDNISONE [Suspect]
     Active Substance: PREDNISONE
     Indication: Polymyalgia rheumatica
     Dosage: 2.5 MG, 1X/DAY
     Route: 048
  6. PREDNISONE [Suspect]
     Active Substance: PREDNISONE
     Dosage: 5 OR 10 MG, DAILY
     Route: 048
     Dates: start: 2009
  7. ASPIRIN [Concomitant]
     Active Substance: ASPIRIN
     Indication: Prophylaxis
     Dosage: 81 MG, ALTERNATE DAY (EVERY OTHER DAY )
  8. ZETIA [Concomitant]
     Active Substance: EZETIMIBE
     Indication: Blood cholesterol abnormal
     Dosage: 10 MG, 1X/DAY
  9. VITAMIN B COMPLEX [Concomitant]
     Active Substance: CYANOCOBALAMIN\DEXPANTHENOL\NIACINAMIDE\PYRIDOXINE HYDROCHLORIDE\RIBOFLAVIN 5^-PHOSPHATE SODIUM\THIA
     Indication: Vitamin supplementation
     Dosage: UNK, 1X/DAY
  10. METOPROLOL [Concomitant]
     Active Substance: METOPROLOL
     Indication: Blood pressure abnormal
     Dosage: 25 MG, 1X/DAY
     Dates: start: 2016
  11. PANTOPRAZOLE [Concomitant]
     Active Substance: PANTOPRAZOLE
     Indication: Gastrooesophageal reflux disease
     Dosage: 40 MG, 1X/DAY
  12. PANTOPRAZOLE [Concomitant]
     Active Substance: PANTOPRAZOLE
     Dosage: UNK
  13. ASPIRIN [Concomitant]
     Active Substance: ASPIRIN
     Dosage: 81 MG
  14. FERROUS SULFATE [Concomitant]
     Active Substance: FERROUS SULFATE
     Dosage: UNK
  15. ROSUVASTATIN [Concomitant]
     Active Substance: ROSUVASTATIN
     Dosage: UNK

REACTIONS (24)
  - Therapeutic product effect incomplete [Unknown]
  - Poor quality product administered [Unknown]
  - Product dose omission issue [Unknown]
  - Product quality issue [Unknown]
  - Full blood count decreased [Unknown]
  - Anaemia [Unknown]
  - Depressed mood [Unknown]
  - Visual impairment [Not Recovered/Not Resolved]
  - Toothache [Unknown]
  - Memory impairment [Not Recovered/Not Resolved]
  - Pain in extremity [Unknown]
  - Oropharyngeal discomfort [Unknown]
  - Sensitivity to weather change [Unknown]
  - Dysphagia [Unknown]
  - Spinal pain [Unknown]
  - Malaise [Unknown]
  - Pruritus [Unknown]
  - Pain [Unknown]
  - Feeling abnormal [Unknown]
  - Stress [Unknown]
  - Cognitive disorder [Unknown]
  - Gastrooesophageal reflux disease [Unknown]
  - Blood cholesterol increased [Unknown]
  - Confusional state [Unknown]

NARRATIVE: CASE EVENT DATE: 20170808
